FAERS Safety Report 17996130 (Version 1)
Quarter: 2020Q3

REPORT INFORMATION
  Report Type: Report from Study
  Country: US (occurrence: US)
  Receive Date: 20200708
  Receipt Date: 20200708
  Transmission Date: 20201103
  Serious: Yes (Other)
  Sender: FDA-Public Use
  Company Number: US-TAIHO ONCOLOGY  INC-EU-2020-02406

PATIENT
  Sex: Female

DRUGS (6)
  1. AMBIEN CR [Concomitant]
     Active Substance: ZOLPIDEM TARTRATE
  2. FIBER CHOICE [Concomitant]
  3. OMEPRAZOLE. [Concomitant]
     Active Substance: OMEPRAZOLE
  4. PROBIOTIC [Concomitant]
     Active Substance: PROBIOTICS NOS
  5. LORAZEPAM. [Concomitant]
     Active Substance: LORAZEPAM
  6. LONSURF [Suspect]
     Active Substance: TIPIRACIL HYDROCHLORIDE\TRIFLURIDINE
     Indication: RECTAL CANCER
     Dosage: CYCLE NUMBER UNKNOWN
     Route: 048
     Dates: start: 20200612

REACTIONS (3)
  - Nausea [Unknown]
  - Liver operation [Unknown]
  - Fatigue [Unknown]
